FAERS Safety Report 20393690 (Version 1)
Quarter: 2022Q1

REPORT INFORMATION
  Report Type: Spontaneous
  Country: IT (occurrence: IT)
  Receive Date: 20220128
  Receipt Date: 20220128
  Transmission Date: 20220423
  Serious: Yes (Other)
  Sender: FDA-Public Use
  Company Number: IT-TEVA-2021-IT-1941094

PATIENT
  Age: 33 Year
  Sex: Female

DRUGS (4)
  1. ABILIFY MAINTENA [Suspect]
     Active Substance: ARIPIPRAZOLE
     Indication: Bipolar disorder
     Dosage: UNK
     Route: 030
     Dates: start: 202105
  2. ABILIFY [Suspect]
     Active Substance: ARIPIPRAZOLE
     Indication: Bipolar disorder
     Dosage: UNK
     Route: 065
  3. CARIPRAZINE [Suspect]
     Active Substance: CARIPRAZINE
     Indication: Bipolar disorder
     Dosage: UNK
     Route: 065
     Dates: start: 2019, end: 2021
  4. LITHIUM CARBONATE [Suspect]
     Active Substance: LITHIUM CARBONATE
     Indication: Bipolar disorder
     Dosage: UNK
     Route: 065
     Dates: start: 2019, end: 2021

REACTIONS (11)
  - Blood aluminium increased [Unknown]
  - Blood arsenic increased [Unknown]
  - Blood mercury abnormal [Unknown]
  - Muscle disorder [Unknown]
  - Obsessive-compulsive disorder [Not Recovered/Not Resolved]
  - Confusional state [Unknown]
  - Movement disorder [Unknown]
  - Gait disturbance [Not Recovered/Not Resolved]
  - Extrapyramidal disorder [Unknown]
  - Sedation [Unknown]
  - Off label use [Unknown]
